FAERS Safety Report 6637417-0 (Version None)
Quarter: 2010Q1

REPORT INFORMATION
  Report Type: 
  Country: None (occurrence: None)
  Receive Date: 20100311
  Receipt Date: 20100304
  Transmission Date: 20100710
  Serious: Yes (Life-Threatening)
  Sender: FDA-Public Use
  Company Number: 2010EU000884

PATIENT
  Sex: Male

DRUGS (3)
  1. MYCAMINE [Suspect]
     Indication: CANDIDIASIS
     Dosage: 100 MG, /D, IV NOS
     Route: 042
  2. CYCLOSPORINE [Concomitant]
  3. CORTICOSTEROID (CORTICOSTEROID NOS) [Concomitant]

REACTIONS (1)
  - FUNGAL SEPSIS [None]
